FAERS Safety Report 4902011-6 (Version None)
Quarter: 2006Q1

REPORT INFORMATION
  Report Type: 
  Country: None (occurrence: None)
  Receive Date: 20060202
  Receipt Date: 20060123
  Transmission Date: 20060701
  Serious: Yes (Death, Hospitalization)
  Sender: FDA-Public Use
  Company Number: 13140

PATIENT
  Age: 71 Year
  Sex: Female
  Weight: 49 kg

DRUGS (5)
  1. CYTARABINE [Suspect]
     Indication: ACUTE MYELOID LEUKAEMIA
     Dosage: 1.4 G DAILY IV
     Route: 042
     Dates: start: 20051109, end: 20051113
  2. ETOPOSIDE [Suspect]
     Indication: ACUTE MYELOID LEUKAEMIA
     Dosage: 146 MG DAILY IV
     Route: 042
     Dates: start: 20051109, end: 20051113
  3. MITOXANTRONE [Suspect]
     Indication: ACUTE MYELOID LEUKAEMIA
     Dosage: 12 MG DAILY IV
     Route: 042
     Dates: start: 20051109, end: 20051113
  4. DIPHENHYDRAMINE [Concomitant]
  5. DEMEROL [Concomitant]

REACTIONS (4)
  - GASTROINTESTINAL HAEMORRHAGE [None]
  - INTESTINAL OBSTRUCTION [None]
  - NAUSEA [None]
  - VOMITING [None]
